FAERS Safety Report 20132496 (Version 2)
Quarter: 2021Q4

REPORT INFORMATION
  Report Type: Spontaneous
  Country: RU (occurrence: RU)
  Receive Date: 20211130
  Receipt Date: 20211209
  Transmission Date: 20220303
  Serious: Yes (Other)
  Sender: FDA-Public Use
  Company Number: RU-MENARINI-RU-MEN-080569

PATIENT
  Age: 65 Year
  Sex: Female
  Weight: 54 kg

DRUGS (7)
  1. RANEXA [Suspect]
     Active Substance: RANOLAZINE
     Indication: Cardiac disorder
     Dosage: 500 MG, BID
     Route: 048
     Dates: start: 20211115, end: 20211117
  2. RANEXA [Suspect]
     Active Substance: RANOLAZINE
     Indication: Angina pectoris
  3. RANEXA [Suspect]
     Active Substance: RANOLAZINE
     Indication: Atrial fibrillation
  4. SOTALOL [Concomitant]
     Active Substance: SOTALOL
     Indication: Atrial fibrillation
     Route: 048
     Dates: start: 2020
  5. SOTALOL [Concomitant]
     Active Substance: SOTALOL
     Route: 048
     Dates: start: 202010
  6. RIVAROXABAN [Concomitant]
     Active Substance: RIVAROXABAN
     Indication: Atrial fibrillation
     Dosage: 20 MG, QD
     Route: 048
     Dates: start: 201610
  7. ROSUVASTATIN CALCIUM [Concomitant]
     Active Substance: ROSUVASTATIN CALCIUM
     Indication: Cardiac failure chronic
     Dosage: 10 MG, QD
     Route: 048
     Dates: start: 202010

REACTIONS (19)
  - Pancreatitis [Recovered/Resolved]
  - Abdominal distension [Recovered/Resolved]
  - General physical health deterioration [Recovered/Resolved]
  - Discomfort [Recovered/Resolved]
  - Diarrhoea [Recovered/Resolved]
  - Vomiting projectile [Recovering/Resolving]
  - Abdominal discomfort [Recovered/Resolved]
  - Blood pressure increased [Recovered/Resolved]
  - Palpitations [Recovered/Resolved]
  - Ear congestion [Unknown]
  - Eructation [Recovered/Resolved]
  - Asthenia [Recovered/Resolved]
  - Tinnitus [Recovered/Resolved]
  - Gait disturbance [Recovered/Resolved]
  - Nausea [Recovering/Resolving]
  - Headache [Recovered/Resolved]
  - Contraindicated product administered [Recovered/Resolved]
  - Product use in unapproved indication [Recovered/Resolved]
  - Product quality issue [Recovered/Resolved]

NARRATIVE: CASE EVENT DATE: 20211115
